FAERS Safety Report 8400119-4 (Version None)
Quarter: 2012Q2

REPORT INFORMATION
  Report Type: 
  Country: None (occurrence: None)
  Receive Date: 20120531
  Receipt Date: 20120524
  Transmission Date: 20120825
  Serious: Yes (Hospitalization, Other)
  Sender: FDA-Public Use
  Company Number: JP-PFIZER INC-2012113656

PATIENT

DRUGS (1)
  1. ZITHROMAX [Suspect]
     Dosage: UNK
     Route: 041
     Dates: start: 20120505, end: 20120509

REACTIONS (2)
  - PANCYTOPENIA [None]
  - PYREXIA [None]
